FAERS Safety Report 10225057 (Version 2)
Quarter: 2014Q3

REPORT INFORMATION
  Report Type: Report from Study
  Country: AU (occurrence: AU)
  Receive Date: 20140609
  Receipt Date: 20140710
  Transmission Date: 20150326
  Serious: Yes (Death)
  Sender: FDA-Public Use
  Company Number: PHHY2014AU069088

PATIENT
  Sex: Female

DRUGS (1)
  1. SANDOSTATIN LAR DEPOT [Suspect]
     Active Substance: OCTREOTIDE ACETATE
     Indication: ACROMEGALY
     Dosage: 30 MG
     Route: 030

REACTIONS (1)
  - Renal failure [Fatal]
